FAERS Safety Report 11639421 (Version 1)
Quarter: 2015Q4

REPORT INFORMATION
  Report Type: Spontaneous
  Country: US (occurrence: US)
  Receive Date: 20151019
  Receipt Date: 20151019
  Transmission Date: 20160304
  Serious: No
  Sender: FDA-Public Use
  Company Number: US-009507513-1510USA005251

PATIENT
  Age: 60 Year
  Sex: Male

DRUGS (1)
  1. PROVENTIL [Suspect]
     Active Substance: ALBUTEROL
     Dosage: 120 MICROGRAM, FREQUENCY:2 PUFF EVERY 6 HOURS
     Route: 055
     Dates: start: 20151008

REACTIONS (3)
  - Product quality issue [Unknown]
  - No adverse event [Unknown]
  - Drug dose omission [Unknown]

NARRATIVE: CASE EVENT DATE: 20151009
